FAERS Safety Report 12975262 (Version 1)
Quarter: 2016Q4

REPORT INFORMATION
  Report Type: Spontaneous
  Country: US (occurrence: US)
  Receive Date: 20161125
  Receipt Date: 20161125
  Transmission Date: 20170207
  Serious: No
  Sender: FDA-Public Use
  Company Number: US-009507513-1610USA016718

PATIENT
  Sex: Female
  Weight: 103.86 kg

DRUGS (1)
  1. NEXPLANON [Suspect]
     Active Substance: ETONOGESTREL
     Indication: CONTRACEPTION
     Dosage: 1 ROD, ONE INSERTION
     Route: 059
     Dates: start: 20140401, end: 20161028

REACTIONS (3)
  - Product quality issue [Unknown]
  - Vaginal haemorrhage [Recovered/Resolved]
  - Device breakage [Recovered/Resolved]
